FAERS Safety Report 8169082-8 (Version None)
Quarter: 2012Q1

REPORT INFORMATION
  Report Type: 
  Country: None (occurrence: None)
  Receive Date: 20120227
  Receipt Date: 20120220
  Transmission Date: 20120608
  Serious: Yes (Hospitalization, Other)
  Sender: FDA-Public Use
  Company Number: JP-CELGENEUS-087-21880-10122450

PATIENT
  Sex: Female
  Weight: 33.1 kg

DRUGS (22)
  1. PURSENNID [Concomitant]
     Indication: PROPHYLAXIS
     Dosage: 3 TABLET
     Route: 048
  2. ASPIRIN [Concomitant]
     Indication: PROPHYLAXIS
     Dosage: 100 MILLIGRAM
     Route: 048
     Dates: start: 20101008
  3. OMEPRAZOLE [Concomitant]
     Indication: PROPHYLAXIS
     Dosage: 20 MILLIGRAM
     Route: 048
     Dates: start: 20100901
  4. REVLIMID [Suspect]
     Dosage: 15 MILLIGRAM
     Route: 048
     Dates: start: 20101008, end: 20101028
  5. PREDNISOLONE [Concomitant]
     Dosage: 5 MILLIGRAM
     Route: 048
     Dates: start: 20100901
  6. PROGRAF [Concomitant]
     Indication: OBLITERATIVE BRONCHIOLITIS
     Dosage: 1 MILLIGRAM
     Route: 048
     Dates: start: 20100901
  7. PREDNISOLONE [Concomitant]
     Dosage: 10 MILLIGRAM
     Route: 065
     Dates: start: 20101216, end: 20110113
  8. VALGANCICLOVIR [Concomitant]
     Indication: MULTIPLE MYELOMA
     Dosage: 450 MILLIGRAM
     Route: 048
     Dates: start: 20101114, end: 20101222
  9. VALTREX [Concomitant]
     Indication: PROPHYLAXIS
     Dosage: 1 TABLET
     Route: 048
  10. DEPAS [Concomitant]
     Indication: PROPHYLAXIS
     Dosage: 1 MILLIGRAM
     Route: 048
     Dates: start: 20100901
  11. PREDNISOLONE [Concomitant]
     Indication: MYELOMA RECURRENCE
     Dosage: 24 MILLIGRAM
     Route: 048
     Dates: start: 20101203, end: 20101215
  12. MAGNESIUM OXIDE [Concomitant]
     Indication: PROPHYLAXIS
     Dosage: 2 GRAM
     Route: 048
  13. DEXAMETHASONE ACETATE [Suspect]
     Indication: MULTIPLE MYELOMA
     Dosage: 20 MILLIGRAM
     Route: 048
     Dates: start: 20100902, end: 20100909
  14. PREDNISOLONE [Concomitant]
     Indication: OBLITERATIVE BRONCHIOLITIS
     Dosage: 48 MILLIGRAM
     Route: 048
  15. REVLIMID [Suspect]
     Indication: MULTIPLE MYELOMA
     Dosage: 25 MILLIGRAM
     Route: 048
     Dates: start: 20100901, end: 20100909
  16. REVLIMID [Suspect]
     Dosage: 15 MILLIGRAM
     Route: 048
     Dates: start: 20101105, end: 20101125
  17. REVLIMID [Suspect]
     Dosage: 15 MILLIGRAM
     Route: 048
     Dates: start: 20101203, end: 20101215
  18. REVLIMID [Suspect]
     Dosage: 20 MILLIGRAM
     Route: 048
     Dates: start: 20101216, end: 20110105
  19. VFEND [Concomitant]
     Indication: PROPHYLAXIS
     Dosage: 400 MILLIGRAM
     Route: 048
     Dates: start: 20100901
  20. ACTONEL [Concomitant]
     Indication: PROPHYLAXIS
     Dosage: 1 TABLET
     Route: 048
     Dates: start: 20100901
  21. COTRIM [Concomitant]
     Indication: PROPHYLAXIS
     Dosage: 4 TABLET
     Route: 048
     Dates: start: 20100901
  22. LAXOBERON [Concomitant]
     Indication: PROPHYLAXIS
     Dosage: DOZENS OF DROPS
     Route: 048

REACTIONS (3)
  - ACUTE GRAFT VERSUS HOST DISEASE IN INTESTINE [None]
  - UPPER RESPIRATORY TRACT INFECTION [None]
  - HERPES ZOSTER [None]
